FAERS Safety Report 15673942 (Version 2)
Quarter: 2019Q1

REPORT INFORMATION
  Report Type: Spontaneous
  Country: US (occurrence: US)
  Receive Date: 20181129
  Receipt Date: 20190128
  Transmission Date: 20190417
  Serious: Yes (Other)
  Sender: FDA-Public Use
  Company Number: US-GLAXOSMITHKLINE-US2018GSK213733

PATIENT
  Age: 54 Year
  Sex: Female

DRUGS (8)
  1. METHOTREXATE. [Suspect]
     Active Substance: METHOTREXATE
  2. PHENERGAN [Concomitant]
     Active Substance: PROMETHAZINE HYDROCHLORIDE
  3. FOLIC ACID. [Concomitant]
     Active Substance: FOLIC ACID
  4. TRAMADOL. [Concomitant]
     Active Substance: TRAMADOL
  5. ASPIRIN (BABY) [Concomitant]
     Active Substance: ASPIRIN
  6. BENLYSTA [Suspect]
     Active Substance: BELIMUMAB
     Indication: SYSTEMIC LUPUS ERYTHEMATOSUS
  7. COLCHICINE. [Concomitant]
     Active Substance: COLCHICINE
  8. MEDROL [Concomitant]
     Active Substance: METHYLPREDNISOLONE

REACTIONS (23)
  - Injection site discomfort [Unknown]
  - Raynaud^s phenomenon [Unknown]
  - Hyperhidrosis [Unknown]
  - Headache [Unknown]
  - Systemic lupus erythematosus [Unknown]
  - Pain [Unknown]
  - Pain in extremity [Unknown]
  - Migraine [Unknown]
  - Ill-defined disorder [Unknown]
  - Chills [Unknown]
  - Hypoaesthesia [Unknown]
  - Breast pain [Unknown]
  - Stress [Unknown]
  - Musculoskeletal chest pain [Unknown]
  - Malaise [Unknown]
  - Injection site pain [Unknown]
  - Ulcer [Unknown]
  - Fatigue [Unknown]
  - Back pain [Unknown]
  - Vomiting [Unknown]
  - Chest pain [Unknown]
  - Painful respiration [Unknown]
  - Nausea [Unknown]
